FAERS Safety Report 6810851-1 (Version None)
Quarter: 2010Q2

REPORT INFORMATION
  Report Type: 
  Country: None (occurrence: None)
  Receive Date: 20100630
  Receipt Date: 20080527
  Transmission Date: 20101027
  Serious: No
  Sender: FDA-Public Use
  Company Number: US-PFIZER INC-2008036267

PATIENT
  Sex: Female
  Weight: 121 kg

DRUGS (5)
  1. ESTRING [Suspect]
     Indication: HORMONE REPLACEMENT THERAPY
     Route: 067
     Dates: start: 20070101
  2. ESTRING [Suspect]
     Indication: VAGINAL OPERATION
  3. SYNTHROID [Concomitant]
  4. ALLEGRA [Concomitant]
  5. MONTELUKAST SODIUM [Concomitant]

REACTIONS (2)
  - STRESS [None]
  - UPPER RESPIRATORY TRACT INFECTION [None]
